FAERS Safety Report 10166857 (Version 1)
Quarter: 2014Q2

REPORT INFORMATION
  Report Type: Spontaneous
  Country: US (occurrence: None)
  Receive Date: 20140508
  Receipt Date: 20140508
  Transmission Date: 20141212
  Serious: Yes (Hospitalization)
  Sender: FDA-Public Use
  Company Number: UTC-048212

PATIENT
  Age: 74 Year
  Sex: Male
  Weight: 117.9 kg

DRUGS (1)
  1. TYVASO (0.6 MILLIGRAM/MILLILITERS, AEROSOL FOR INHALATION) (TREPROSTINIL SODIUM) [Suspect]
     Indication: PULMONARY ARTERIAL HYPERTENSION
     Dosage: 288 UG (72 UG, 4 IN 1 D)
     Route: 055
     Dates: start: 20130214

REACTIONS (1)
  - Localised infection [None]
